FAERS Safety Report 6527284-8 (Version None)
Quarter: 2010Q1

REPORT INFORMATION
  Report Type: 
  Country: None (occurrence: None)
  Receive Date: 20100104
  Receipt Date: 20100104
  Transmission Date: 20100710
  Serious: No
  Sender: FDA-Public Use
  Company Number: None

PATIENT
  Sex: Female

DRUGS (5)
  1. SULFAMETHOXAZOLE AND TRIMETHOPRIM [Suspect]
     Dosage: 10 TABLETS BOTTLE
     Dates: start: 20091207, end: 20091215
  2. ALLEGRA [Concomitant]
  3. PRILOSEC OTC [Concomitant]
  4. ALAMAST [Concomitant]
  5. SYNTHROID [Concomitant]

REACTIONS (1)
  - DRUG HYPERSENSITIVITY [None]
